FAERS Safety Report 19498138 (Version 1)
Quarter: 2021Q3

REPORT INFORMATION
  Report Type: Spontaneous
  Country: DE (occurrence: DE)
  Receive Date: 20210706
  Receipt Date: 20210706
  Transmission Date: 20211014
  Serious: Yes (Hospitalization)
  Sender: FDA-Public Use
  Company Number: DE-TEVA-2021-DE-1929875

PATIENT
  Age: 68 Year
  Sex: Female
  Weight: 74 kg

DRUGS (5)
  1. AMOXICILLIN. [Suspect]
     Active Substance: AMOXICILLIN
     Indication: ENTERITIS
     Dosage: FOR SEVEN DAYS
     Route: 048
  2. VIANI 50G/250G DISKUS [Concomitant]
     Dosage: 2 DOSAGE FORMS DAILY; 250 | 50 UG, 1?0?1?0, DISCUS
     Route: 055
  3. AMOXICILLIN. [Suspect]
     Active Substance: AMOXICILLIN
     Indication: CLOSTRIDIAL INFECTION
  4. RISPERIDON [Concomitant]
     Active Substance: RISPERIDONE
     Dosage: .25 MILLIGRAM DAILY;  0?0?1?0
     Route: 048
  5. VENLAFAXIN [Concomitant]
     Active Substance: VENLAFAXINE HYDROCHLORIDE
     Dosage: 37.5 MILLIGRAM DAILY;  0?0?1?0
     Route: 048

REACTIONS (4)
  - Nausea [Unknown]
  - Vomiting [Unknown]
  - Abdominal pain lower [Unknown]
  - Bronchitis [Unknown]
